FAERS Safety Report 7665440-6 (Version None)
Quarter: 2011Q3

REPORT INFORMATION
  Report Type: 
  Country: None (occurrence: None)
  Receive Date: 20110806
  Receipt Date: 20110322
  Transmission Date: 20111222
  Serious: No
  Sender: FDA-Public Use
  Company Number: US-ABBOTT-11P-163-0713467-00

PATIENT
  Sex: Male
  Weight: 104.42 kg

DRUGS (8)
  1. HYDROCHLOROTHIAZIDE [Concomitant]
     Indication: PRODUCT USED FOR UNKNOWN INDICATION
  2. ATENOLOL [Concomitant]
     Indication: PRODUCT USED FOR UNKNOWN INDICATION
  3. CHLOR-CON [Concomitant]
     Indication: PRODUCT USED FOR UNKNOWN INDICATION
  4. ASPIRIN [Concomitant]
     Indication: PRODUCT USED FOR UNKNOWN INDICATION
     Dosage: AT BEDTIME
  5. VITAMIN TAB [Concomitant]
     Indication: PRODUCT USED FOR UNKNOWN INDICATION
  6. NIASPAN [Suspect]
     Indication: BLOOD CALCIUM INCREASED
     Dosage: AT BEDTIME
     Dates: start: 20100301
  7. NIASPAN [Suspect]
     Indication: ARTERIOSCLEROSIS
  8. CRESTOR [Concomitant]
     Indication: PRODUCT USED FOR UNKNOWN INDICATION

REACTIONS (4)
  - PARAESTHESIA [None]
  - GLYCOSYLATED HAEMOGLOBIN INCREASED [None]
  - FLUSHING [None]
  - ERYTHEMA [None]
